FAERS Safety Report 9720161 (Version 2)
Quarter: 2013Q4

REPORT INFORMATION
  Report Type: Spontaneous
  Country: US (occurrence: US)
  Receive Date: 20131129
  Receipt Date: 20131210
  Transmission Date: 20140711
  Serious: Yes (Hospitalization)
  Sender: FDA-Public Use
  Company Number: US-LUNDBECK-DKLU1095625

PATIENT
  Age: 1 Year
  Sex: Male
  Weight: 13 kg

DRUGS (25)
  1. SABRIL (FOR ORAL SOLUTION) [Suspect]
     Indication: INFANTILE SPASMS
     Dates: start: 20131008
  2. SABRIL (FOR ORAL SOLUTION) [Suspect]
  3. SABRIL (FOR ORAL SOLUTION) [Suspect]
  4. DDAVP [Suspect]
     Indication: DIABETES INSIPIDUS
     Dosage: 2 DOSES
     Route: 050
  5. DDAVP [Suspect]
     Route: 048
  6. KEPPRA [Concomitant]
     Indication: INFANTILE SPASMS
     Route: 048
     Dates: start: 201304, end: 201305
  7. KEPPRA [Concomitant]
     Indication: TONIC CONVULSION
     Route: 048
     Dates: start: 201306
  8. KEPPRA [Concomitant]
     Route: 048
  9. TOPAMAX [Concomitant]
     Indication: INFANTILE SPASMS
     Route: 048
     Dates: start: 201307
  10. TOPAMAX [Concomitant]
     Indication: TONIC CONVULSION
  11. PREDNISOLONE [Concomitant]
     Indication: INFANTILE SPASMS
     Route: 048
     Dates: start: 201308
  12. PREDNISOLONE [Concomitant]
     Indication: TONIC CONVULSION
     Dates: start: 201310
  13. POLYETHYLENE GLYCOL [Concomitant]
     Indication: CONSTIPATION
     Route: 048
  14. POLYETHYLENE GLYCOL [Concomitant]
     Route: 048
  15. ZONISAMIDE [Concomitant]
     Indication: PRODUCT USED FOR UNKNOWN INDICATION
     Route: 048
  16. ACETAMINOPHEN [Concomitant]
     Indication: PAIN
     Route: 048
  17. ACETAMINOPHEN [Concomitant]
     Indication: PYREXIA
     Route: 050
  18. DIAZEPAM [Concomitant]
     Indication: CONVULSION
     Route: 050
  19. DIPHENHYDRAMINE [Concomitant]
     Indication: RASH
     Route: 048
  20. DIPHENHYDRAMINE [Concomitant]
     Indication: PRURITUS
  21. IBUPROFEN [Concomitant]
     Indication: PAIN
     Route: 048
  22. IBUPROFEN [Concomitant]
     Indication: PYREXIA
  23. ONDANSETRON [Concomitant]
     Indication: NAUSEA
     Route: 048
  24. ONDANSETRON [Concomitant]
     Indication: VOMITING
  25. OXYCODONE [Concomitant]
     Indication: PAIN
     Route: 048

REACTIONS (10)
  - Diabetes insipidus [Recovering/Resolving]
  - Hypernatraemia [Recovered/Resolved]
  - Device malfunction [Recovered/Resolved]
  - Dehydration [Recovered/Resolved]
  - Hyponatraemia [Recovered/Resolved]
  - Myoclonic epilepsy [Unknown]
  - Muscle spasms [Unknown]
  - Pain [Recovered/Resolved]
  - Decreased appetite [Recovering/Resolving]
  - Constipation [Recovered/Resolved]
